FAERS Safety Report 9933745 (Version 1)
Quarter: 2014Q1

REPORT INFORMATION
  Report Type: Report from Study
  Country: US (occurrence: US)
  Receive Date: 20140228
  Receipt Date: 20140228
  Transmission Date: 20141002
  Serious: No
  Sender: FDA-Public Use
  Company Number: US-MYLANLABS-2013S1012770

PATIENT
  Age: 51 Year
  Sex: Female

DRUGS (6)
  1. AMNESTEEM CAPSULES [Suspect]
     Indication: ACNE
     Route: 048
     Dates: start: 201302, end: 20130308
  2. AMNESTEEM CAPSULES [Suspect]
     Indication: ACNE
     Route: 048
     Dates: start: 20130413, end: 20130510
  3. AMNESTEEM CAPSULES [Suspect]
     Indication: ACNE
     Route: 048
     Dates: start: 20130511
  4. TOPAMAX [Concomitant]
     Indication: MIGRAINE
     Route: 048
  5. VICOPROFEN [Concomitant]
     Indication: MIGRAINE
     Route: 048
  6. OMEPRAZOLE [Concomitant]
     Indication: DUODENAL STENOSIS
     Route: 048

REACTIONS (2)
  - Blood cholesterol increased [Recovered/Resolved]
  - Headache [Not Recovered/Not Resolved]
